FAERS Safety Report 9928629 (Version 2)
Quarter: 2014Q2

REPORT INFORMATION
  Report Type: Spontaneous
  Country: GB (occurrence: GB)
  Receive Date: 20140227
  Receipt Date: 20140407
  Transmission Date: 20141212
  Serious: Yes (Hospitalization, Other)
  Sender: FDA-Public Use
  Company Number: GB-PFIZER INC-2014053830

PATIENT
  Age: 87 Year
  Sex: Female

DRUGS (8)
  1. TAZOCIN [Suspect]
     Indication: PNEUMONIA
     Dosage: 4.5 G, 3X/DAY
     Route: 042
     Dates: start: 20140113, end: 20140117
  2. GENTAMICIN SULFATE [Suspect]
     Indication: SURGERY
     Dosage: 160 MG (STAT), SINGLE
     Route: 042
     Dates: start: 20140101, end: 20140101
  3. TEICOPLANIN [Suspect]
     Indication: SURGERY
     Dosage: 400 MG (STAT), SINGLE
     Route: 042
     Dates: start: 20140101, end: 20140101
  4. ADCAL-D3 [Concomitant]
     Dosage: UNK
  5. ALENDRONATE [Concomitant]
     Dosage: UNK
  6. LANSOPRAZOLE [Concomitant]
     Dosage: UNK
  7. MACROGOL [Concomitant]
     Dosage: UNK
  8. MIRTAZAPINE [Concomitant]
     Dosage: UNK

REACTIONS (1)
  - Clostridium difficile infection [Not Recovered/Not Resolved]
